FAERS Safety Report 20546807 (Version 4)
Quarter: 2022Q2

REPORT INFORMATION
  Report Type: Report from Study
  Country: GB (occurrence: GB)
  Receive Date: 20220303
  Receipt Date: 20220421
  Transmission Date: 20220720
  Serious: Yes (Hospitalization)
  Sender: FDA-Public Use
  Company Number: GB-ABBVIE-22K-167-4299503-00

PATIENT
  Age: 80 Year
  Sex: Female

DRUGS (3)
  1. CARBIDOPA\LEVODOPA [Suspect]
     Active Substance: CARBIDOPA\LEVODOPA
     Indication: Parkinson^s disease
     Dosage: M.D-4.5MILLIGRAMS
     Route: 050
  2. CARBIDOPA\LEVODOPA [Suspect]
     Active Substance: CARBIDOPA\LEVODOPA
     Dosage: M.D- 3 MILLIGRAMS
     Route: 050
  3. QUETIAPINE [Concomitant]
     Active Substance: QUETIAPINE
     Indication: Product used for unknown indication

REACTIONS (10)
  - Hip fracture [Unknown]
  - Fall [Unknown]
  - Hypophagia [Unknown]
  - Wheelchair user [Unknown]
  - Hypopnoea [Unknown]
  - Immobile [Unknown]
  - Mastication disorder [Unknown]
  - Asthenia [Unknown]
  - Weight decreased [Unknown]
  - Dyskinesia [Recovered/Resolved]

NARRATIVE: CASE EVENT DATE: 20220101
